FAERS Safety Report 5953756-0 (Version None)
Quarter: 2008Q4

REPORT INFORMATION
  Report Type: 
  Country: None (occurrence: None)
  Receive Date: 20081114
  Receipt Date: 20081023
  Transmission Date: 20090506
  Serious: No
  Sender: FDA-Public Use
  Company Number: US-BAYER-200836633NA

PATIENT
  Age: 44 Year
  Sex: Male

DRUGS (4)
  1. LEVITRA [Suspect]
     Indication: ERECTILE DYSFUNCTION
     Dosage: UNIT DOSE: 20 MG
     Route: 048
     Dates: start: 20030101
  2. LISINOPRIL [Concomitant]
     Dates: start: 20070701
  3. DILTIAZEM HCL [Concomitant]
     Dates: start: 20070701
  4. HYDROCHLOROTHIAZIDE [Concomitant]
     Dates: start: 20070701

REACTIONS (2)
  - ERECTILE DYSFUNCTION [None]
  - HEADACHE [None]
